FAERS Safety Report 6937757-1 (Version None)
Quarter: 2010Q3

REPORT INFORMATION
  Report Type: 
  Country: None (occurrence: None)
  Receive Date: 20100820
  Receipt Date: 20100820
  Transmission Date: 20110219
  Serious: No
  Sender: FDA-Public Use
  Company Number: None

PATIENT

DRUGS (1)
  1. MIDAZOLAM HCL [Suspect]

REACTIONS (6)
  - APHASIA [None]
  - DYSPHAGIA [None]
  - HEART RATE ABNORMAL [None]
  - MEMORY IMPAIRMENT [None]
  - RESPIRATORY DISORDER [None]
  - THROAT IRRITATION [None]
